FAERS Safety Report 20701740 (Version 1)
Quarter: 2022Q2

REPORT INFORMATION
  Report Type: Other
  Country: None (occurrence: IN)
  Receive Date: 20220412
  Receipt Date: 20220412
  Transmission Date: 20220721
  Serious: Yes (Hospitalization)
  Sender: FDA-Public Use
  Company Number: IN-Daewoong Pharmaceutical Co., Ltd.-2127646

PATIENT
  Age: 8 Day
  Sex: Female

DRUGS (1)
  1. MEROPENEM [Suspect]
     Active Substance: MEROPENEM
     Indication: Burkholderia cepacia complex infection

REACTIONS (1)
  - Methaemoglobinaemia [Recovered/Resolved]
